FAERS Safety Report 6176938-4 (Version None)
Quarter: 2009Q2

REPORT INFORMATION
  Report Type: 
  Country: None (occurrence: None)
  Receive Date: 20090501
  Receipt Date: 20090422
  Transmission Date: 20091009
  Serious: Yes (Hospitalization)
  Sender: FDA-Public Use
  Company Number: JP-AMGEN-US340672

PATIENT
  Sex: Female
  Weight: 52 kg

DRUGS (4)
  1. ENBREL [Suspect]
     Indication: RHEUMATOID ARTHRITIS
     Route: 058
     Dates: start: 20080221, end: 20090219
  2. ADALAT [Concomitant]
     Dosage: 20/DAY
     Route: 048
  3. GASTER [Concomitant]
     Dosage: 40/DAY
     Route: 048
  4. PREDONINE [Concomitant]
     Route: 048

REACTIONS (1)
  - THYROIDITIS SUBACUTE [None]
